FAERS Safety Report 8377606-0 (Version None)
Quarter: 2012Q2

REPORT INFORMATION
  Report Type: 
  Country: None (occurrence: None)
  Receive Date: 20120522
  Receipt Date: 20120521
  Transmission Date: 20120825
  Serious: Yes (Other)
  Sender: FDA-Public Use
  Company Number: JP-PFIZER INC-2011307236

PATIENT
  Age: 57 Year
  Sex: Female

DRUGS (6)
  1. LYRICA [Suspect]
     Indication: PAIN
     Dosage: 25 MG, 2X/DAY
     Route: 048
     Dates: start: 20100701
  2. LYRICA [Suspect]
     Dosage: 75MG IN 2 DAYS
     Route: 048
  3. LYRICA [Suspect]
     Dosage: 25 MG, 1X/DAY
     Route: 048
     Dates: start: 20120404
  4. LYRICA [Suspect]
     Dosage: 25 MG, 1X/DAY
     Route: 048
     Dates: start: 20100101
  5. LYRICA [Suspect]
     Dosage: 25 MG, 2X/DAY
     Route: 048
  6. MEILAX [Concomitant]
     Dosage: UNK

REACTIONS (6)
  - LOW DENSITY LIPOPROTEIN INCREASED [None]
  - ASPARTATE AMINOTRANSFERASE INCREASED [None]
  - IRRITABILITY [None]
  - DEPRESSED MOOD [None]
  - PAIN [None]
  - ALANINE AMINOTRANSFERASE INCREASED [None]
